FAERS Safety Report 4458949-X (Version None)
Quarter: 2004Q3

REPORT INFORMATION
  Report Type: 
  Country: None (occurrence: None)
  Receive Date: 20040923
  Receipt Date: 20040923
  Transmission Date: 20050211
  Serious: No
  Sender: FDA-Public Use
  Company Number: None

PATIENT
  Age: 49 Year
  Sex: Female
  Weight: 57.6068 kg

DRUGS (3)
  1. ADRIAMYCIN (2MG/ ML)  BEDFORD  NDC#55390-238-01 [Suspect]
     Indication: BREAST CANCER
     Dosage: 100MG IVP
     Route: 042
     Dates: start: 20040823
  2. ADRIAMYCIN (2MG/ ML)  BEDFORD  NDC#55390-238-01 [Suspect]
     Indication: BREAST CANCER
     Dosage: 100MG IVP
     Route: 042
     Dates: start: 20040907
  3. ... [Concomitant]

REACTIONS (8)
  - ABDOMINAL DISCOMFORT [None]
  - BURNING SENSATION [None]
  - DYSPEPSIA [None]
  - ERYTHEMA [None]
  - HYPOAESTHESIA [None]
  - INFUSION RELATED REACTION [None]
  - PARAESTHESIA [None]
  - VOMITING [None]
